FAERS Safety Report 16393935 (Version 1)
Quarter: 2019Q3

REPORT INFORMATION
  Report Type: Spontaneous
  Country: US (occurrence: US)
  Receive Date: 20190603
  Receipt Date: 20190603
  Transmission Date: 20191004
  Serious: Yes (Other)
  Sender: FDA-Public Use
  Company Number: None

PATIENT
  Age: 56 Year
  Sex: Male
  Weight: 54 kg

DRUGS (4)
  1. MIRTAZAPINE 45MG DAILY [Concomitant]
     Dates: start: 20170601
  2. THIORIDAZINE [Suspect]
     Active Substance: THIORIDAZINE
     Indication: INTERMITTENT EXPLOSIVE DISORDER
     Route: 048
     Dates: start: 20090601, end: 20190327
  3. LEVOTHYROXINE 50MCG DAILY [Concomitant]
     Dates: start: 20090601
  4. PANTOPRAZOLE 40MG BID [Concomitant]
     Dates: start: 20100601

REACTIONS (4)
  - Chromaturia [None]
  - Systemic inflammatory response syndrome [None]
  - Electrocardiogram QT prolonged [None]
  - Influenza [None]

NARRATIVE: CASE EVENT DATE: 20190327
